FAERS Safety Report 6357746-8 (Version None)
Quarter: 2009Q3

REPORT INFORMATION
  Report Type: 
  Country: None (occurrence: None)
  Receive Date: 20090911
  Receipt Date: 20090827
  Transmission Date: 20100115
  Serious: Yes (Hospitalization)
  Sender: FDA-Public Use
  Company Number: 8051108

PATIENT
  Age: 52 Year
  Sex: Male
  Weight: 82.5 kg

DRUGS (13)
  1. CDP870 [Suspect]
     Indication: RHEUMATOID ARTHRITIS
     Dosage: 200 MG SC
     Route: 058
     Dates: start: 20090210, end: 20090507
  2. CDP870 [Suspect]
     Indication: RHEUMATOID ARTHRITIS
     Dosage: 200 MG SC
     Route: 058
     Dates: start: 20090520, end: 20090729
  3. METHOTREXATE [Concomitant]
  4. PLAQUENIL [Concomitant]
  5. PREDNISONE TAB [Concomitant]
  6. NAPROXEN [Concomitant]
  7. FOLIC ACID [Concomitant]
  8. ASPIRIN [Concomitant]
  9. CRESTOR [Concomitant]
  10. MOTOPROLOL [Concomitant]
  11. RABEPRAZOLE [Concomitant]
  12. VENTOLIN [Concomitant]
  13. PLACEBO [Suspect]
     Dates: start: 20090210, end: 20090507

REACTIONS (6)
  - ARTHRALGIA [None]
  - DRUG INEFFECTIVE [None]
  - INFECTION [None]
  - JOINT SWELLING [None]
  - PYREXIA [None]
  - WHITE BLOOD CELL COUNT INCREASED [None]
